FAERS Safety Report 8511483-X (Version None)
Quarter: 2012Q3

REPORT INFORMATION
  Report Type: 
  Country: None (occurrence: None)
  Receive Date: 20120716
  Receipt Date: 20120712
  Transmission Date: 20120928
  Serious: Yes (Other)
  Sender: FDA-Public Use
  Company Number: CN-BAYER-2012-069764

PATIENT

DRUGS (2)
  1. GLUCOBAY [Suspect]
     Indication: DIABETES MELLITUS
     Dosage: UNK
     Route: 048
     Dates: start: 20120101
  2. ACARBOSE [Suspect]

REACTIONS (2)
  - ASTHENIA [None]
  - CACHEXIA [None]
